FAERS Safety Report 8429572-7 (Version None)
Quarter: 2012Q2

REPORT INFORMATION
  Report Type: 
  Country: None (occurrence: None)
  Receive Date: 20120612
  Receipt Date: 20120605
  Transmission Date: 20120825
  Serious: Yes (Death)
  Sender: FDA-Public Use
  Company Number: US-JNJFOC-20120603501

PATIENT

DRUGS (15)
  1. CYCLOPHOSPHAMIDE [Suspect]
     Indication: ACUTE LYMPHOCYTIC LEUKAEMIA
     Route: 065
  2. CYCLOPHOSPHAMIDE [Suspect]
     Indication: CHROMOSOME ANALYSIS ABNORMAL
     Route: 065
  3. CYTARABINE [Suspect]
     Indication: ACUTE LYMPHOCYTIC LEUKAEMIA
     Route: 065
  4. DASATINIB [Suspect]
     Indication: ACUTE LYMPHOCYTIC LEUKAEMIA
     Dosage: FIRST 14 DAYS OF EACH OF 8 CYCLES OF ALTERNATING HYPERCVAD
     Route: 048
  5. VINCRISTINE [Suspect]
     Indication: CHRONIC MYELOID LEUKAEMIA
     Route: 065
  6. VINCRISTINE [Suspect]
     Indication: ACUTE LYMPHOCYTIC LEUKAEMIA
     Route: 065
  7. CYTARABINE [Suspect]
     Indication: CHRONIC MYELOID LEUKAEMIA
     Route: 065
  8. DOXORUBICIN HYDROCHLORIDE [Suspect]
     Indication: ACUTE LYMPHOCYTIC LEUKAEMIA
     Route: 042
  9. DEXAMETHASONE [Suspect]
     Indication: ACUTE LYMPHOCYTIC LEUKAEMIA
     Route: 065
  10. DASATINIB [Suspect]
     Indication: CHRONIC MYELOID LEUKAEMIA
     Dosage: FIRST 14 DAYS OF EACH OF 8 CYCLES OF ALTERNATING HYPERCVAD
     Route: 048
  11. METHOTREXATE [Suspect]
     Indication: CHRONIC MYELOID LEUKAEMIA
     Route: 065
  12. METHOTREXATE [Suspect]
     Indication: ACUTE LYMPHOCYTIC LEUKAEMIA
     Route: 065
  13. DOXORUBICIN HYDROCHLORIDE [Suspect]
     Indication: CHRONIC MYELOID LEUKAEMIA
     Route: 042
  14. CYCLOPHOSPHAMIDE [Suspect]
     Indication: CHRONIC MYELOID LEUKAEMIA
     Route: 065
  15. DEXAMETHASONE [Suspect]
     Indication: CHRONIC MYELOID LEUKAEMIA
     Route: 065

REACTIONS (1)
  - DEATH [None]
